FAERS Safety Report 5564770-1 (Version None)
Quarter: 2007Q4

REPORT INFORMATION
  Report Type: 
  Country: None (occurrence: None)
  Receive Date: 20071218
  Receipt Date: 20071207
  Transmission Date: 20080405
  Serious: Yes (Other)
  Sender: FDA-Public Use
  Company Number: BR-ROCHE-536154

PATIENT
  Age: 41 Year
  Sex: Female
  Weight: 73 kg

DRUGS (4)
  1. XENICAL [Suspect]
     Indication: WEIGHT CONTROL
     Route: 048
     Dates: start: 20000101, end: 20000101
  2. XENICAL [Suspect]
     Route: 048
     Dates: start: 20071101
  3. RIVOTRIL [Concomitant]
  4. RED CLOVER [Concomitant]
     Indication: HORMONE THERAPY
     Dosage: DRUG NAME: CLIMADIL
     Dates: start: 20060101

REACTIONS (2)
  - HYSTERECTOMY [None]
  - STEATORRHOEA [None]
